FAERS Safety Report 6876840-6 (Version None)
Quarter: 2010Q2

REPORT INFORMATION
  Report Type: 
  Country: None (occurrence: None)
  Receive Date: 20100616
  Receipt Date: 20100319
  Transmission Date: 20101027
  Serious: No
  Sender: FDA-Public Use
  Company Number: DSA_42828_2010

PATIENT
  Sex: Male

DRUGS (7)
  1. XENAZINE [Suspect]
     Indication: HUNTINGTON'S CHOREA
     Dosage: 25 MG QD ORAL, 12.5 MG QD ORAL
     Route: 048
     Dates: start: 20100201, end: 20100301
  2. XENAZINE [Suspect]
     Indication: HUNTINGTON'S CHOREA
     Dosage: 25 MG QD ORAL, 12.5 MG QD ORAL
     Route: 048
     Dates: start: 20100301
  3. BUSPAR [Concomitant]
  4. CARDURA [Concomitant]
  5. TYLENOL PM [Concomitant]
  6. PROSCAR [Concomitant]
  7. NASONEX [Concomitant]

REACTIONS (3)
  - AGGRESSION [None]
  - BELLIGERENCE [None]
  - CONFUSIONAL STATE [None]
